FAERS Safety Report 5805824-1 (Version None)
Quarter: 2008Q3

REPORT INFORMATION
  Report Type: 
  Country: None (occurrence: None)
  Receive Date: 20080710
  Receipt Date: 20080630
  Transmission Date: 20090109
  Serious: Yes (Death, Life-Threatening)
  Sender: FDA-Public Use
  Company Number: JP-WYE-H04465008

PATIENT
  Age: 79 Year
  Sex: Male

DRUGS (1)
  1. ANCARON [Suspect]
     Dosage: 200 MG DAILY
     Route: 065

REACTIONS (2)
  - DEATH [None]
  - INTERSTITIAL LUNG DISEASE [None]
